FAERS Safety Report 10098442 (Version 1)
Quarter: 2014Q2

REPORT INFORMATION
  Report Type: Spontaneous
  Country: US (occurrence: US)
  Receive Date: 20140423
  Receipt Date: 20140423
  Transmission Date: 20141212
  Serious: No
  Sender: FDA-Public Use
  Company Number: US-PFIZER INC-2014112467

PATIENT
  Age: 77 Year
  Sex: Female
  Weight: 78.91 kg

DRUGS (2)
  1. XELJANZ [Suspect]
     Indication: ARTHRITIS
     Dosage: 5 MG, 2X/DAY
     Dates: end: 201404
  2. ATELVIA [Suspect]
     Indication: OSTEOPOROSIS
     Dosage: 35 MG, WEEKLY

REACTIONS (1)
  - Diarrhoea [Unknown]
